FAERS Safety Report 7782010-X (Version None)
Quarter: 2011Q3

REPORT INFORMATION
  Report Type: 
  Country: None (occurrence: None)
  Receive Date: 20110927
  Receipt Date: 20110920
  Transmission Date: 20111222
  Serious: Yes (Hospitalization)
  Sender: FDA-Public Use
  Company Number: PHEH2011US04980

PATIENT
  Sex: Male
  Weight: 29.025 kg

DRUGS (1)
  1. EXJADE [Suspect]
     Indication: SICKLE CELL ANAEMIA
     Dosage: 1125 MG, DAILY
     Route: 048
     Dates: start: 20100802

REACTIONS (2)
  - JAUNDICE [None]
  - VOMITING [None]
